FAERS Safety Report 9498963 (Version 2)
Quarter: 2013Q4

REPORT INFORMATION
  Report Type: Spontaneous
  Country: US (occurrence: US)
  Receive Date: 20130904
  Receipt Date: 20131004
  Transmission Date: 20140711
  Serious: Yes (Hospitalization, Other)
  Sender: FDA-Public Use
  Company Number: US-TEVA-430417USA

PATIENT
  Age: 53 Year
  Sex: Female

DRUGS (7)
  1. PACLITAXEL [Suspect]
     Indication: BREAST CANCER
     Route: 042
     Dates: start: 20130816, end: 20130816
  2. ATENOLOL [Concomitant]
     Dosage: 50 MILLIGRAM DAILY;
  3. OMEPRAZOLE [Concomitant]
     Dosage: 20 MILLIGRAM DAILY;
  4. POTASSIUM CHLORIDE [Concomitant]
     Dosage: 20 MILLIGRAM DAILY;
  5. SYNTHROID [Concomitant]
     Dosage: 88 MICROGRAM DAILY;
  6. IRON [Concomitant]
     Dosage: 325 MILLIGRAM DAILY;
  7. DEXAMETHASONE [Concomitant]
     Dosage: 12 HOURS AND 6 HOURS PRIOR TO CHEMO

REACTIONS (5)
  - Pneumonitis [Unknown]
  - Lung infiltration [Unknown]
  - Dyspnoea [Recovering/Resolving]
  - Hypoxia [Recovering/Resolving]
  - Pyrexia [Recovered/Resolved]
